FAERS Safety Report 6317400-5 (Version None)
Quarter: 2009Q3

REPORT INFORMATION
  Report Type: 
  Country: None (occurrence: None)
  Receive Date: 20090820
  Receipt Date: 20090820
  Transmission Date: 20100115
  Serious: Yes (Hospitalization)
  Sender: FDA-Public Use
  Company Number: None

PATIENT
  Age: 45 Year
  Sex: Female
  Weight: 40.8237 kg

DRUGS (2)
  1. MEDROXYPROGESTERONE [Suspect]
     Indication: AMENORRHOEA
     Dosage: 150 MG / ML 1 DOSE EVERY 3 MONTHS 1ST SHOT FEB. 2ND SHOT MAY
     Dates: start: 20090201
  2. MEDROXYPROGESTERONE [Suspect]
     Indication: AMENORRHOEA
     Dosage: 150 MG / ML 1 DOSE EVERY 3 MONTHS 1ST SHOT FEB. 2ND SHOT MAY
     Dates: start: 20090501

REACTIONS (7)
  - BACK PAIN [None]
  - CHEST PAIN [None]
  - DIZZINESS [None]
  - HEADACHE [None]
  - HYPERTENSION [None]
  - HYPOAESTHESIA [None]
  - NAUSEA [None]
